FAERS Safety Report 4578434-4 (Version None)
Quarter: 2005Q1

REPORT INFORMATION
  Report Type: 
  Country: None (occurrence: None)
  Receive Date: 20050203
  Receipt Date: 20050203
  Transmission Date: 20050727
  Serious: Yes (Other)
  Sender: FDA-Public Use
  Company Number: None

PATIENT
  Age: 56 Year
  Sex: Female

DRUGS (1)
  1. ESTRADIOL [Suspect]
     Dosage: 1 PATCH ONCE PER WEEK TRANSDERMAL
     Route: 062
     Dates: start: 20040820, end: 20041106

REACTIONS (1)
  - APPLICATION SITE DERMATITIS [None]
